FAERS Safety Report 9969828 (Version 3)
Quarter: 2014Q2

REPORT INFORMATION
  Report Type: Spontaneous
  Country: NO (occurrence: NO)
  Receive Date: 20140306
  Receipt Date: 20140623
  Transmission Date: 20141212
  Serious: Yes (Hospitalization)
  Sender: FDA-Public Use
  Company Number: NO-JNJFOC-20140300109

PATIENT
  Sex: Male

DRUGS (2)
  1. REMICADE [Suspect]
     Indication: HIDRADENITIS
     Route: 042
  2. NEORECORMON [Suspect]
     Indication: PRODUCT USED FOR UNKNOWN INDICATION
     Route: 065

REACTIONS (7)
  - Confusional state [Recovered/Resolved]
  - Amnesia [Recovered/Resolved]
  - Cerebral infarction [Unknown]
  - Therapeutic product ineffective [Unknown]
  - Antibody test positive [Unknown]
  - Immunosuppressant drug level decreased [Unknown]
  - Off label use [Unknown]
